FAERS Safety Report 9980710 (Version 3)
Quarter: 2014Q1

REPORT INFORMATION
  Report Type: Spontaneous
  Country: CO (occurrence: CO)
  Receive Date: 20140307
  Receipt Date: 20140318
  Transmission Date: 20141002
  Serious: Yes (Other)
  Sender: FDA-Public Use
  Company Number: CO-AMGEN-COLSP2014016031

PATIENT
  Age: 74 Year
  Sex: Female
  Weight: 62 kg

DRUGS (3)
  1. ENBREL [Suspect]
     Indication: RHEUMATOID ARTHRITIS
     Dosage: 50 MG, WEEKLY
     Route: 058
     Dates: start: 201207
  2. DEFLAZACORT [Concomitant]
     Dosage: UNK
  3. ARAVA [Concomitant]
     Dosage: UNK

REACTIONS (2)
  - Visual acuity reduced [Recovered/Resolved]
  - Eyelid disorder [Recovered/Resolved]
